FAERS Safety Report 17525758 (Version 3)
Quarter: 2020Q2

REPORT INFORMATION
  Report Type: Report from Study
  Country: None (occurrence: US)
  Receive Date: 20200311
  Receipt Date: 20200515
  Transmission Date: 20200713
  Serious: Yes (Hospitalization, Other)
  Sender: FDA-Public Use
  Company Number: US-ABBVIE-20K-163-3305818-00

PATIENT
  Age: 46 Year
  Sex: Female

DRUGS (3)
  1. HUMIRA [Suspect]
     Active Substance: ADALIMUMAB
     Indication: PSORIASIS
     Route: 058
     Dates: start: 2007, end: 202002
  2. HUMIRA [Suspect]
     Active Substance: ADALIMUMAB
     Indication: RHEUMATOID ARTHRITIS
     Route: 058
     Dates: start: 2020
  3. TURMERIC [Concomitant]
     Active Substance: HERBALS\TURMERIC
     Indication: INFLAMMATION

REACTIONS (12)
  - Femur fracture [Recovering/Resolving]
  - Oral pain [Not Recovered/Not Resolved]
  - Facial pain [Recovering/Resolving]
  - Glucose tolerance impaired [Recovering/Resolving]
  - Hyperaesthesia teeth [Not Recovered/Not Resolved]
  - Cyst [Recovered/Resolved]
  - Hypersensitivity [Recovering/Resolving]
  - Overweight [Recovering/Resolving]
  - Chapped lips [Not Recovered/Not Resolved]
  - Sinusitis [Not Recovered/Not Resolved]
  - Fall [Recovering/Resolving]
  - Neuralgia [Unknown]

NARRATIVE: CASE EVENT DATE: 200903
